FAERS Safety Report 16165362 (Version 3)
Quarter: 2019Q2

REPORT INFORMATION
  Report Type: Spontaneous
  Country: US (occurrence: US)
  Receive Date: 20190405
  Receipt Date: 20190411
  Transmission Date: 20190711
  Serious: Yes (Death, Hospitalization)
  Sender: FDA-Public Use
  Company Number: US-ALNYLAM PHARMACEUTICALS, INC.-ALN-2019-000234

PATIENT
  Age: 56 Year
  Sex: Male
  Weight: 106.8 kg

DRUGS (1)
  1. ONPATTRO [Suspect]
     Active Substance: PATISIRAN SODIUM
     Indication: HEREDITARY NEUROPATHIC AMYLOIDOSIS

REACTIONS (2)
  - Cardiac failure [Fatal]
  - Chest pain [Unknown]

NARRATIVE: CASE EVENT DATE: 20190331
